FAERS Safety Report 18867338 (Version 1)
Quarter: 2021Q1

REPORT INFORMATION
  Report Type: Spontaneous
  Country: FR (occurrence: FR)
  Receive Date: 20210209
  Receipt Date: 20210209
  Transmission Date: 20210420
  Serious: Yes (Hospitalization)
  Sender: FDA-Public Use
  Company Number: FR-BRISTOL-MYERS SQUIBB COMPANY-BMS-2021-009350

PATIENT
  Sex: Male
  Weight: 85 kg

DRUGS (7)
  1. CARDENSIEL [Suspect]
     Active Substance: BISOPROLOL FUMARATE
     Indication: HYPERTENSION
     Dosage: 3.75 MILLIGRAM NUMBER OF UNITS IN THE INTERVAL 1 DAY
     Route: 048
  2. BACTRIM [Suspect]
     Active Substance: SULFAMETHOXAZOLE\TRIMETHOPRIM
     Indication: INFECTION PROPHYLAXIS
     Dosage: 1 DOSAGE FORM NUMBER OF UNITS IN THE INTERVAL 1 DAY
     Route: 048
     Dates: start: 2018
  3. LERCAN [Suspect]
     Active Substance: LERCANIDIPINE
     Indication: HYPERTENSION
     Dosage: 20 MILLIGRAM NUMBER OF UNITS IN THE INTERVAL 1 DAY
     Route: 048
  4. CORTANCYL [Suspect]
     Active Substance: PREDNISONE
     Indication: PROPHYLAXIS AGAINST TRANSPLANT REJECTION
     Dosage: 10 MILLIGRAM NUMBER OF UNITS IN THE INTERVAL 1 DAY
     Route: 048
     Dates: start: 2018
  5. NULOJIX [Suspect]
     Active Substance: BELATACEPT
     Indication: PROPHYLAXIS AGAINST TRANSPLANT REJECTION
     Dosage: 1 MILLIGRAM NUMBER OF UNITS IN THE INTERVAL 1 MONTH
     Route: 041
     Dates: start: 2018
  6. MYFORTIC [Suspect]
     Active Substance: MYCOPHENOLATE SODIUM
     Indication: PROPHYLAXIS AGAINST TRANSPLANT REJECTION
     Dosage: 360 MILLIGRAM NUMBER OF UNITS IN THE INTERVAL 1 DAY
     Route: 048
     Dates: start: 2018
  7. VALSARTAN. [Suspect]
     Active Substance: VALSARTAN
     Indication: HYPERTENSION
     Dosage: 40 MILLIGRAM NUMBER OF UNITS IN THE INTERVAL 1 DAY
     Route: 048
     Dates: start: 2018

REACTIONS (1)
  - Condition aggravated [Not Recovered/Not Resolved]

NARRATIVE: CASE EVENT DATE: 202008
